FAERS Safety Report 24704751 (Version 1)
Quarter: 2024Q4

REPORT INFORMATION
  Report Type: Spontaneous
  Country: US (occurrence: US)
  Receive Date: 20241206
  Receipt Date: 20241206
  Transmission Date: 20250114
  Serious: No
  Sender: PADAGIS
  Company Number: US-PADAGIS-2024PAD01854

PATIENT

DRUGS (1)
  1. KETOCONAZOLE [Suspect]
     Active Substance: KETOCONAZOLE
     Indication: Product used for unknown indication
     Dosage: UNK
     Route: 065

REACTIONS (4)
  - Paraesthesia [None]
  - Therapy partial responder [Unknown]
  - Product use issue [Unknown]
  - Liquid product physical issue [Unknown]
